FAERS Safety Report 5822396-6 (Version None)
Quarter: 2008Q3

REPORT INFORMATION
  Report Type: 
  Country: None (occurrence: None)
  Receive Date: 20080725
  Receipt Date: 20080718
  Transmission Date: 20090109
  Serious: Yes (Hospitalization, Disabling, Other)
  Sender: FDA-Public Use
  Company Number: US-ROCHE-384838

PATIENT
  Sex: Female
  Weight: 46.3 kg

DRUGS (10)
  1. ACCUTANE [Suspect]
     Indication: ACNE
     Route: 048
     Dates: start: 19990901, end: 19991101
  2. ACCUTANE [Suspect]
     Dosage: REPORTED AS 40 MG AND 10 MG
     Route: 048
     Dates: start: 19991101, end: 20000201
  3. ACCUTANE [Suspect]
     Dosage: REPORTED AS 40 MG AND 60 MG
     Route: 048
     Dates: start: 20000201, end: 20000301
  4. ACCUTANE [Suspect]
     Dosage: REPORTED AS 40 MG AND 10 MG
     Route: 048
     Dates: start: 20000301, end: 20000401
  5. ORTHO TRI-CYCLEN [Concomitant]
     Route: 048
     Dates: start: 19990101
  6. ALBUTEROL [Concomitant]
  7. ALLEGRA [Concomitant]
  8. CLEOCIN LOTION [Concomitant]
  9. PROZAC [Concomitant]
  10. FLONASE [Concomitant]

REACTIONS (15)
  - ACRODERMATITIS [None]
  - ASTHMA [None]
  - COLITIS [None]
  - COLITIS ULCERATIVE [None]
  - DRY SKIN [None]
  - GASTROENTERITIS [None]
  - GASTROINTESTINAL DISORDER [None]
  - HEADACHE [None]
  - INFLAMMATORY BOWEL DISEASE [None]
  - INTESTINAL HAEMORRHAGE [None]
  - IRRITABLE BOWEL SYNDROME [None]
  - MULTI-ORGAN DISORDER [None]
  - POUCHITIS [None]
  - RECTAL HAEMORRHAGE [None]
  - SINUSITIS [None]
